FAERS Safety Report 22389011 (Version 3)
Quarter: 2023Q4

REPORT INFORMATION
  Report Type: Spontaneous
  Country: FR (occurrence: FR)
  Receive Date: 20230531
  Receipt Date: 20231220
  Transmission Date: 20240109
  Serious: Yes (Life-Threatening, Other)
  Sender: FDA-Public Use
  Company Number: None

PATIENT
  Age: 62 Year
  Sex: Male
  Weight: 81 kg

DRUGS (9)
  1. ROCURONIUM BROMIDE [Suspect]
     Active Substance: ROCURONIUM BROMIDE
     Indication: Anaesthesia
     Dosage: 50 MG, SINGLE
     Route: 042
     Dates: start: 20230509, end: 20230509
  2. KETAMINE [Suspect]
     Active Substance: KETAMINE
     Indication: Anaesthesia
     Dosage: 40 MG, SINGLE
     Route: 042
     Dates: start: 20230509, end: 20230509
  3. LIDOCAINE HYDROCHLORIDE [Suspect]
     Active Substance: DEXTROSE MONOHYDRATE\EPINEPHRINE\EPINEPHRINE BITARTRATE\LIDOCAINE\LIDOCAINE HYDROCHLORIDE\LIDOCAINE
     Indication: Anaesthesia
     Dosage: 120 MG, SINGLE
     Route: 042
     Dates: start: 20230509, end: 20230509
  4. SUFENTANIL [Suspect]
     Active Substance: SUFENTANIL
     Indication: Anaesthesia
     Dosage: 25 UG, SINGLE
     Route: 042
     Dates: start: 20230509, end: 20230509
  5. PROPOFOL [Suspect]
     Active Substance: PROPOFOL
     Indication: Anaesthesia
     Dosage: 300 MG, SINGLE
     Route: 042
     Dates: start: 20230509, end: 20230509
  6. DEXAMETHASONE [Suspect]
     Active Substance: DEXAMETHASONE
     Indication: Anaesthesia
     Dosage: 8 MG, SINGLE
     Route: 042
     Dates: start: 20230509, end: 20230509
  7. SIMVASTATIN [Concomitant]
     Active Substance: SIMVASTATIN
  8. WARFARIN SODIUM [Concomitant]
     Active Substance: WARFARIN SODIUM
  9. PROPRANOLOL [Concomitant]
     Active Substance: PROPRANOLOL HYDROCHLORIDE
     Dosage: UNK

REACTIONS (2)
  - Cardiogenic shock [Recovered/Resolved]
  - Anaphylactic shock [Recovered/Resolved]

NARRATIVE: CASE EVENT DATE: 20230509
